FAERS Safety Report 7799444-X (Version None)
Quarter: 2011Q4

REPORT INFORMATION
  Report Type: 
  Country: None (occurrence: None)
  Receive Date: 20111006
  Receipt Date: 20110928
  Transmission Date: 20120403
  Serious: Yes (Hospitalization)
  Sender: FDA-Public Use
  Company Number: CH-SANOFI-AVENTIS-2011SA063793

PATIENT
  Age: 34 Year
  Sex: Female

DRUGS (18)
  1. SEROQUEL [Interacting]
     Route: 048
     Dates: start: 20110501, end: 20110501
  2. NORVIR [Interacting]
     Indication: HIV INFECTION
     Dosage: LONG-TERM THERAPY.
     Route: 048
  3. VIREAD [Concomitant]
     Dosage: LONG-TERM THERAPY.
     Route: 048
  4. SEROQUEL [Interacting]
     Route: 048
     Dates: start: 20110101, end: 20110401
  5. STILNOX CR [Suspect]
     Dosage: LONG-TERM THERAPY.
     Route: 048
  6. SEROQUEL [Interacting]
     Route: 048
     Dates: start: 20100901, end: 20110101
  7. METHADONE HCL [Interacting]
     Dosage: LONG-TERM THERAPY.
     Route: 048
  8. REMERON [Interacting]
     Indication: SCHIZOAFFECTIVE DISORDER
     Dosage: FOR MONTHS (NOS).
     Route: 048
     Dates: end: 20110728
  9. SEROQUEL [Interacting]
     Indication: SCHIZOAFFECTIVE DISORDER
     Route: 048
     Dates: end: 20100801
  10. SEROQUEL [Interacting]
     Route: 048
     Dates: start: 20110802, end: 20110818
  11. REMERON [Interacting]
     Route: 048
     Dates: start: 20110808, end: 20110814
  12. REMERON [Interacting]
     Route: 048
     Dates: start: 20110815
  13. XYZAL [Concomitant]
     Dosage: LONG-TERM THERAPY.
     Route: 048
  14. ATAZANAVIR SULFATE [Interacting]
     Indication: HIV INFECTION
     Dosage: LONG-TERM THERAPY.
     Route: 048
  15. OXAZEPAM [Interacting]
     Dosage: LONG-TERM THERAPY.
     Route: 048
     Dates: end: 20110818
  16. BIPERIDEN [Concomitant]
     Dosage: LONG-TERM THERAPY.
     Route: 048
     Dates: end: 20110725
  17. LAMIVUDINE (EPIVIR HBV) [Concomitant]
     Dosage: LONG-TERM THERAPY.
     Route: 048
  18. SEROQUEL [Interacting]
     Route: 048
     Dates: start: 20110101, end: 20110701

REACTIONS (3)
  - ELECTROCARDIOGRAM QT PROLONGED [None]
  - SEDATION [None]
  - DRUG INTERACTION [None]
